FAERS Safety Report 19053320 (Version 1)
Quarter: 2021Q1

REPORT INFORMATION
  Report Type: Report from Study
  Country: EG (occurrence: EG)
  Receive Date: 20210324
  Receipt Date: 20210324
  Transmission Date: 20210420
  Serious: Yes (Death, Hospitalization)
  Sender: FDA-Public Use
  Company Number: NVSC2021EG067217

PATIENT
  Age: 81 Year
  Sex: Male

DRUGS (1)
  1. ENTRESTO [Suspect]
     Active Substance: SACUBITRIL\VALSARTAN
     Indication: CARDIAC FAILURE
     Dosage: 50 MG, BID
     Route: 048

REACTIONS (7)
  - Oxygen saturation decreased [Unknown]
  - Coronavirus infection [Unknown]
  - Myocardial infarction [Fatal]
  - Nasopharyngitis [Unknown]
  - Attention deficit hyperactivity disorder [Unknown]
  - Cerebrovascular accident [Unknown]
  - Pyrexia [Unknown]

NARRATIVE: CASE EVENT DATE: 20201215
